FAERS Safety Report 23111618 (Version 1)
Quarter: 2023Q4

REPORT INFORMATION
  Report Type: Spontaneous
  Country: FR (occurrence: FR)
  Receive Date: 20231026
  Receipt Date: 20231026
  Transmission Date: 20240109
  Serious: Yes (Other)
  Sender: FDA-Public Use
  Company Number: FR-002147023-NVSC2023FR224394

PATIENT
  Age: 57 Year
  Sex: Male

DRUGS (6)
  1. COSENTYX [Suspect]
     Active Substance: SECUKINUMAB
     Indication: Product used for unknown indication
     Dosage: UNK (PRIMARY INEFFECTIVENESS)
     Route: 065
     Dates: start: 201704, end: 201802
  2. INFLIXIMAB [Suspect]
     Active Substance: INFLIXIMAB
     Indication: Spondylitis
     Dosage: 5 MG/KG, ONCE/SINGLE
     Route: 042
     Dates: start: 20230331, end: 20230331
  3. INFLIXIMAB [Suspect]
     Active Substance: INFLIXIMAB
     Dosage: 5 MG/KG, ONCE/SINGLE
     Route: 042
     Dates: start: 20230414, end: 20230414
  4. ETANERCEPT [Suspect]
     Active Substance: ETANERCEPT
     Indication: Product used for unknown indication
     Dosage: UNK, ^PARTIAL EFFICIENCY^ : POSSIBLE IMPROVEMENT OF AXIAL PAIN
     Route: 065
     Dates: start: 201811, end: 2019
  5. IXEKIZUMAB [Suspect]
     Active Substance: IXEKIZUMAB
     Indication: Product used for unknown indication
     Dosage: UNK, ^PARTIAL EFFICIENCY^ ^NAIL MYCOSIS^
     Route: 065
     Dates: start: 202110, end: 2022
  6. METFORMIN [Concomitant]
     Active Substance: METFORMIN HYDROCHLORIDE
     Indication: Diabetes mellitus
     Dosage: UNK
     Route: 048

REACTIONS (4)
  - Hypersensitivity [Recovered/Resolved]
  - Arthralgia [Not Recovered/Not Resolved]
  - Off label use [Unknown]
  - Drug ineffective [Unknown]

NARRATIVE: CASE EVENT DATE: 20230331
